FAERS Safety Report 10522060 (Version 2)
Quarter: 2014Q4

REPORT INFORMATION
  Report Type: Report from Study
  Country: FR (occurrence: FR)
  Receive Date: 20141016
  Receipt Date: 20141016
  Transmission Date: 20150528
  Serious: Yes (Other)
  Sender: FDA-Public Use
  Company Number: FR-CELGENE-056-21660-14060598

PATIENT
  Age: 65 Year
  Sex: Female

DRUGS (4)
  1. FOLINIC ACID [Suspect]
     Active Substance: LEUCOVORIN
     Indication: PANCREATIC CARCINOMA METASTATIC
     Route: 065
     Dates: start: 20140204, end: 20140602
  2. 5-FU [Suspect]
     Active Substance: FLUOROURACIL
     Indication: PANCREATIC CARCINOMA METASTATIC
     Route: 041
     Dates: start: 20140204, end: 20140602
  3. 5-FU [Suspect]
     Active Substance: FLUOROURACIL
     Route: 040
     Dates: start: 20140204, end: 20140602
  4. ABRAXANE [Suspect]
     Active Substance: PACLITAXEL
     Indication: PANCREATIC CARCINOMA METASTATIC
     Route: 041
     Dates: start: 20140204, end: 20140602

REACTIONS (1)
  - Lymphoedema [Recovered/Resolved]

NARRATIVE: CASE EVENT DATE: 20140506
